FAERS Safety Report 24540596 (Version 2)
Quarter: 2025Q3

REPORT INFORMATION
  Report Type: Report from Study
  Country: CA (occurrence: CA)
  Receive Date: 20241023
  Receipt Date: 20250822
  Transmission Date: 20251021
  Serious: Yes (Other)
  Sender: GLAXOSMITHKLINE
  Company Number: CA-GLAXOSMITHKLINE INC-CA2024127955

PATIENT
  Age: 51 Year
  Sex: Female

DRUGS (1)
  1. BELIMUMAB [Suspect]
     Active Substance: BELIMUMAB
     Indication: Systemic lupus erythematosus
     Dosage: 200 MG, WE

REACTIONS (4)
  - Foot deformity [Recovered/Resolved]
  - Fracture [Unknown]
  - Pain [Not Recovered/Not Resolved]
  - Fatigue [Not Recovered/Not Resolved]

NARRATIVE: CASE EVENT DATE: 20241004
